FAERS Safety Report 26067049 (Version 1)
Quarter: 2025Q4

REPORT INFORMATION
  Report Type: Spontaneous
  Country: US (occurrence: US)
  Receive Date: 20251119
  Receipt Date: 20251119
  Transmission Date: 20260118
  Serious: No
  Sender: AMGEN
  Company Number: US-AMGEN-USASP2025229233

PATIENT
  Sex: Male

DRUGS (1)
  1. MVASI [Suspect]
     Active Substance: BEVACIZUMAB-AWWB
     Indication: Colon cancer
     Dosage: UNK (ORDERED DOSE: 359 MILLIGRAM, REQUESTING FOR REPLACEMENT: (1) 400 MILLIGRAM VIAL)
     Route: 065

REACTIONS (1)
  - Influenza like illness [Unknown]
